FAERS Safety Report 6479650-7 (Version None)
Quarter: 2009Q4

REPORT INFORMATION
  Report Type: 
  Country: None (occurrence: None)
  Receive Date: 20091207
  Receipt Date: 20091207
  Transmission Date: 20100525
  Serious: Yes (Hospitalization)
  Sender: FDA-Public Use
  Company Number: None

PATIENT
  Sex: Male
  Weight: 94 kg

DRUGS (1)
  1. CYTARABINE [Suspect]
     Dosage: 12 G

REACTIONS (5)
  - ASPERGILLOSIS [None]
  - H1N1 INFLUENZA [None]
  - NEUTROPENIA [None]
  - PYREXIA [None]
  - RESPIRATORY FAILURE [None]
